FAERS Safety Report 10003657 (Version 1)
Quarter: 2014Q1

REPORT INFORMATION
  Report Type: Spontaneous
  Country: US (occurrence: US)
  Receive Date: 20140312
  Receipt Date: 20140312
  Transmission Date: 20141002
  Serious: Yes (Hospitalization, Other)
  Sender: FDA-Public Use
  Company Number: US-ABBVIE-13P-163-1118132-00

PATIENT
  Sex: Female
  Weight: 40.41 kg

DRUGS (4)
  1. DEPAKOTE [Suspect]
     Indication: GRAND MAL CONVULSION
     Route: 048
     Dates: start: 1999, end: 201303
  2. ATIVAN [Concomitant]
     Indication: GRAND MAL CONVULSION
  3. NEURONTIN [Concomitant]
     Indication: GRAND MAL CONVULSION
  4. SYNTHROID [Concomitant]
     Indication: HYPOTHYROIDISM

REACTIONS (5)
  - Vomiting [Recovered/Resolved]
  - Nausea [Recovered/Resolved]
  - Fatigue [Recovering/Resolving]
  - Lethargy [Recovering/Resolving]
  - Abdominal pain upper [Recovered/Resolved]
